FAERS Safety Report 5420228-1 (Version None)
Quarter: 2007Q3

REPORT INFORMATION
  Report Type: 
  Country: None (occurrence: None)
  Receive Date: 20070815
  Receipt Date: 20070731
  Transmission Date: 20080115
  Serious: Yes (Hospitalization, Other)
  Sender: FDA-Public Use
  Company Number: DSA_30219_2007

PATIENT
  Age: 56 Year
  Sex: Male
  Weight: 71 kg

DRUGS (12)
  1. RENIVACE (RENIVACE-ENALAPRIL MALEATE) [Suspect]
     Indication: DRUG USE FOR UNKNOWN INDICATION
     Dosage: (1.25 MG QD ORAL)
     Route: 048
     Dates: start: 20070628, end: 20070701
  2. PANALDINE (PANALDINE-TICLOPIDINE HYDROCHLORIDE) [Suspect]
     Dosage: (100 MG BID ORAL)
     Route: 048
     Dates: start: 20070623
  3. VOGLIBOSE (BASEN OD-VOGLIBOSE) [Suspect]
     Dosage: (0.2 MG TID ORAL)
     Route: 048
  4. TAKEPRON (TAKEPRON-LANSOPRAZOLE) (NOT SPECIFIED) [Suspect]
     Dosage: (15 MG QD ORAL)
     Route: 048
     Dates: start: 20070625
  5. HALCION [Concomitant]
  6. SIGMART [Concomitant]
  7. ALPRAZOLAM [Concomitant]
  8. ASPIRIN [Concomitant]
  9. METOPROLOL TARTRATE [Concomitant]
  10. ARTIST [Concomitant]
  11. LIVALO [Concomitant]
  12. DEPAS [Concomitant]

REACTIONS (3)
  - HEPATIC FUNCTION ABNORMAL [None]
  - PYREXIA [None]
  - TOXIC SKIN ERUPTION [None]
